FAERS Safety Report 9734175 (Version 2)
Quarter: 2013Q4

REPORT INFORMATION
  Report Type: Spontaneous
  Country: US (occurrence: US)
  Receive Date: 20131205
  Receipt Date: 20131219
  Transmission Date: 20140711
  Serious: Yes (Hospitalization, Other)
  Sender: FDA-Public Use
  Company Number: US-GILEAD-2013-0089130

PATIENT
  Sex: Female
  Weight: 91.62 kg

DRUGS (25)
  1. LETAIRIS [Suspect]
     Indication: PULMONARY HYPERTENSION
     Dosage: 5 MG, QD
     Route: 048
     Dates: start: 20130718
  2. LEVEMIR [Concomitant]
  3. METOPROLOL SUCCINATE [Concomitant]
  4. DOCUSATE SODIUM [Concomitant]
  5. POLYETHYLENE GLYCOL [Concomitant]
     Indication: CONSTIPATION
  6. HYDROCODONE/ACETAMINOPHEN          /00607101/ [Concomitant]
     Indication: PAIN
  7. TORSEMIDE [Concomitant]
  8. LISINOPRIL [Concomitant]
  9. INSULIN ASPART [Concomitant]
  10. FLAXSEED OIL [Concomitant]
  11. POLYCARBOPHIL CALCIUM [Concomitant]
  12. FISH OIL [Concomitant]
  13. IRON COMPLEX                       /00023501/ [Concomitant]
  14. MULTI VITAMINS + MINERALS [Concomitant]
  15. SUPER B COMPLEX                    /01995301/ [Concomitant]
  16. PREGABALIN [Concomitant]
  17. NITROGLYCERIN [Concomitant]
  18. COLESTIPOL [Concomitant]
  19. ASPIRIN [Concomitant]
  20. FENOFIBRATE [Concomitant]
  21. MULTIVITAMINS [Concomitant]
  22. DULOXETINE [Concomitant]
  23. ESOMEPRAZOLE [Concomitant]
  24. CYANOCOBALAMIN [Concomitant]
  25. AMITRIPTYLINE [Concomitant]

REACTIONS (3)
  - Renal failure [Unknown]
  - Fall [Unknown]
  - Ankle fracture [Unknown]
